FAERS Safety Report 8712245 (Version 3)
Quarter: 2012Q4

REPORT INFORMATION
  Report Type: 
  Country: FI (occurrence: FI)
  Receive Date: 20120808
  Receipt Date: 20121001
  Transmission Date: 20130627
  Serious: Yes (Hospitalization, Other)
  Sender: FDA-Public Use
  Company Number: FI-AMGEN-FINSP2012048488

PATIENT
  Age: 67 Year
  Sex: Female

DRUGS (8)
  1. XGEVA [Suspect]
     Indication: BREAST CANCER METASTATIC
     Dosage: 120 mg, q4wk
     Route: 058
     Dates: start: 20120704
  2. XGEVA [Suspect]
     Indication: METASTASES TO BONE
  3. CIPRALEX [Suspect]
     Indication: DEPRESSION
     Dosage: 5 mg, qd
     Route: 048
     Dates: start: 20120713
  4. SPECICOR [Concomitant]
     Indication: HYPERTENSION
     Dosage: 47.5 mg, bid
     Route: 048
  5. FASLODEX                           /01503001/ [Concomitant]
     Indication: BREAST CANCER METASTATIC
     Dosage: 500 mg, q4wk
     Route: 030
     Dates: start: 20120704, end: 20120801
  6. FASLODEX                           /01503001/ [Concomitant]
     Indication: METASTASES TO BONE
  7. OXYCONTIN [Concomitant]
     Indication: PAIN
     Dosage: 10 mg, bid
     Route: 048
     Dates: start: 20120702
  8. LIPCUT [Concomitant]
     Indication: BLOOD CHOLESTEROL INCREASED
     Dosage: 40 mg, qd
     Route: 048

REACTIONS (5)
  - Thrombocytopenia [Not Recovered/Not Resolved]
  - Anaemia [Not Recovered/Not Resolved]
  - Aspartate aminotransferase increased [None]
  - Blood alkaline phosphatase increased [None]
  - Blood lactate dehydrogenase increased [None]
